FAERS Safety Report 6971654-0 (Version None)
Quarter: 2010Q3

REPORT INFORMATION
  Report Type: 
  Country: None (occurrence: None)
  Receive Date: 20100908
  Receipt Date: 20100827
  Transmission Date: 20110219
  Serious: Yes (Hospitalization)
  Sender: FDA-Public Use
  Company Number: PHHY2010DE57326

PATIENT
  Sex: Male

DRUGS (1)
  1. PROVAS [Suspect]
     Dosage: 80 MG
     Dates: start: 20100101

REACTIONS (1)
  - DEPRESSION [None]
